FAERS Safety Report 16652314 (Version 1)
Quarter: 2019Q3

REPORT INFORMATION
  Report Type: Spontaneous
  Country: US (occurrence: US)
  Receive Date: 20190731
  Receipt Date: 20190731
  Transmission Date: 20191004
  Serious: No
  Sender: FDA-Public Use
  Company Number: US-PFIZER INC-2019328617

PATIENT
  Age: 71 Year
  Sex: Female
  Weight: 91 kg

DRUGS (1)
  1. CELECOXIB. [Suspect]
     Active Substance: CELECOXIB
     Dosage: 100 MG, UNK
     Dates: start: 20190618

REACTIONS (1)
  - Drug ineffective [Unknown]
